FAERS Safety Report 9824461 (Version 2)
Quarter: 2014Q1

REPORT INFORMATION
  Report Type: Spontaneous
  Country: US (occurrence: US)
  Receive Date: 20140116
  Receipt Date: 20140116
  Transmission Date: 20141002
  Serious: No
  Sender: FDA-Public Use
  Company Number: US-GILEAD-2011-0039669

PATIENT
  Age: 1 Year
  Sex: Male
  Weight: 7.72 kg

DRUGS (9)
  1. LETAIRIS [Suspect]
     Indication: PULMONARY HYPERTENSION
     Route: 048
     Dates: start: 20110503, end: 20110505
  2. LETAIRIS [Suspect]
     Indication: BRONCHOPULMONARY DYSPLASIA
  3. LETAIRIS [Suspect]
     Indication: TRISOMY 21
  4. LETAIRIS [Suspect]
     Indication: VENTRICULAR SEPTAL DEFECT
  5. SILDENAFIL [Concomitant]
     Indication: PULMONARY HYPERTENSION
  6. KCL [Concomitant]
  7. LASIX [Concomitant]
  8. ALBUTEROL [Concomitant]
  9. SINGULAIR [Concomitant]

REACTIONS (3)
  - Pyrexia [Unknown]
  - Flushing [Unknown]
  - Rash [Recovered/Resolved]
